FAERS Safety Report 7165429-X (Version None)
Quarter: 2010Q4

REPORT INFORMATION
  Report Type: 
  Country: None (occurrence: None)
  Receive Date: 20101215
  Receipt Date: 20101202
  Transmission Date: 20110411
  Serious: Yes (Other)
  Sender: FDA-Public Use
  Company Number: DE-ELI_LILLY_AND_COMPANY-DE201012000448

PATIENT
  Sex: Female
  Weight: 77 kg

DRUGS (2)
  1. GEMCITABINE HCL [Suspect]
     Indication: BREAST CANCER
     Dosage: 1870 MG, UNK
     Route: 042
     Dates: start: 20100519
  2. DOCETAXEL [Suspect]
     Indication: BREAST CANCER
     Dosage: 140 MG, UNK
     Route: 042
     Dates: start: 20100519

REACTIONS (1)
  - MYOCARDIAL INFARCTION [None]
